FAERS Safety Report 20446413 (Version 3)
Quarter: 2025Q3

REPORT INFORMATION
  Report Type: Spontaneous
  Country: JP (occurrence: JP)
  Receive Date: 20220208
  Receipt Date: 20250710
  Transmission Date: 20251021
  Serious: Yes (Hospitalization, Other)
  Sender: LUNDBECK
  Company Number: JP-SAKK-2021SA200741AA

PATIENT
  Age: 7 Month
  Sex: Male
  Weight: 7.58 kg

DRUGS (31)
  1. SABRIL [Suspect]
     Active Substance: VIGABATRIN
     Indication: Infantile spasms
     Dosage: 200 MG/DAY, BID
     Route: 048
     Dates: start: 20200203, end: 20200206
  2. SABRIL [Suspect]
     Active Substance: VIGABATRIN
     Dosage: 500 MG/DAY, BID
     Route: 048
     Dates: start: 20221012, end: 20230114
  3. SABRIL [Suspect]
     Active Substance: VIGABATRIN
     Route: 048
  4. SABRIL [Suspect]
     Active Substance: VIGABATRIN
     Dosage: 380 MG/DAY, BID
     Route: 048
     Dates: start: 20200206, end: 20200209
  5. SABRIL [Suspect]
     Active Substance: VIGABATRIN
     Dosage: 600 MG/DAY, BID
     Route: 048
     Dates: start: 20200212, end: 20200218
  6. SABRIL [Suspect]
     Active Substance: VIGABATRIN
     Dosage: 800 MG/DAY, BID
     Route: 048
     Dates: start: 20200218, end: 20200312
  7. SABRIL [Suspect]
     Active Substance: VIGABATRIN
     Dosage: 1000 MG/DAY, BID
     Route: 048
     Dates: start: 20200312, end: 20200402
  8. SABRIL [Suspect]
     Active Substance: VIGABATRIN
     Dosage: 1100 MG/DAY, BID
     Route: 048
     Dates: start: 20200402, end: 20200501
  9. SABRIL [Suspect]
     Active Substance: VIGABATRIN
     Dosage: 1200 MG/DAY, BID
     Route: 048
     Dates: start: 20200501, end: 20200501
  10. SABRIL [Suspect]
     Active Substance: VIGABATRIN
     Dosage: 1100 MG/DAY, BID
     Route: 048
     Dates: start: 20200502, end: 20220718
  11. SABRIL [Suspect]
     Active Substance: VIGABATRIN
     Dosage: 800 MG/DAY, BID
     Route: 048
     Dates: start: 20220720, end: 20221011
  12. TOSUFLOXACIN TOSYLATE [Concomitant]
     Active Substance: TOSUFLOXACIN TOSYLATE
     Indication: Product used for unknown indication
     Route: 048
     Dates: start: 20210417, end: 20210426
  13. TOSUFLOXACIN TOSYLATE [Concomitant]
     Active Substance: TOSUFLOXACIN TOSYLATE
     Route: 048
     Dates: start: 20211021, end: 20211025
  14. CARBOCYSTEINE [Concomitant]
     Active Substance: CARBOCYSTEINE
     Indication: Product used for unknown indication
     Route: 048
     Dates: start: 20210417, end: 20210421
  15. CARBOCYSTEINE [Concomitant]
     Active Substance: CARBOCYSTEINE
     Route: 048
     Dates: start: 20210507, end: 20210520
  16. CARBOCYSTEINE [Concomitant]
     Active Substance: CARBOCYSTEINE
     Route: 048
     Dates: start: 20210526, end: 20211105
  17. CARBOCYSTEINE [Concomitant]
     Active Substance: CARBOCYSTEINE
     Route: 048
     Dates: start: 20220214
  18. AMBROXOL HYDROCHLORIDE [Concomitant]
     Active Substance: AMBROXOL HYDROCHLORIDE
     Indication: Product used for unknown indication
     Route: 048
     Dates: start: 20210417, end: 20210421
  19. AMBROXOL HYDROCHLORIDE [Concomitant]
     Active Substance: AMBROXOL HYDROCHLORIDE
     Route: 048
     Dates: start: 20210507, end: 20210520
  20. AMBROXOL HYDROCHLORIDE [Concomitant]
     Active Substance: AMBROXOL HYDROCHLORIDE
     Route: 048
     Dates: start: 20210526, end: 20211105
  21. CLAVAMOX [AMOXICILLIN TRIHYDRATE;CLAVULANATE POTASSIUM] [Concomitant]
     Indication: Product used for unknown indication
     Route: 048
     Dates: start: 20210426, end: 20210428
  22. CLAVAMOX [AMOXICILLIN TRIHYDRATE;CLAVULANATE POTASSIUM] [Concomitant]
     Route: 048
     Dates: start: 20210618, end: 20210623
  23. CLAVAMOX [AMOXICILLIN TRIHYDRATE;CLAVULANATE POTASSIUM] [Concomitant]
     Route: 048
     Dates: start: 20210827, end: 20210830
  24. CLAVAMOX [AMOXICILLIN TRIHYDRATE;CLAVULANATE POTASSIUM] [Concomitant]
     Route: 048
     Dates: start: 20220506, end: 20220511
  25. CLAVAMOX [AMOXICILLIN TRIHYDRATE;CLAVULANATE POTASSIUM] [Concomitant]
     Route: 048
     Dates: start: 20220601, end: 20220605
  26. CLAVAMOX [AMOXICILLIN TRIHYDRATE;CLAVULANATE POTASSIUM] [Concomitant]
     Route: 048
     Dates: start: 20221219, end: 20221223
  27. PRANLUKAST [Concomitant]
     Active Substance: PRANLUKAST
     Indication: Product used for unknown indication
     Route: 048
     Dates: start: 20210507, end: 20210520
  28. PRANLUKAST [Concomitant]
     Active Substance: PRANLUKAST
     Route: 048
     Dates: start: 20210526, end: 20210607
  29. PRANLUKAST [Concomitant]
     Active Substance: PRANLUKAST
     Route: 048
     Dates: start: 20210827, end: 20210914
  30. CLARITHROMYCIN [Concomitant]
     Active Substance: CLARITHROMYCIN
     Indication: Product used for unknown indication
     Route: 048
     Dates: start: 20210526, end: 20210531
  31. MONTELUKAST SODIUM [Concomitant]
     Active Substance: MONTELUKAST SODIUM
     Indication: Product used for unknown indication
     Route: 048
     Dates: start: 20210608, end: 20210628

REACTIONS (2)
  - Gastrostomy [Unknown]
  - Pneumonia [Unknown]
